FAERS Safety Report 22259620 (Version 2)
Quarter: 2023Q2

REPORT INFORMATION
  Report Type: Spontaneous
  Country: CA (occurrence: CA)
  Receive Date: 20230427
  Receipt Date: 20230622
  Transmission Date: 20230722
  Serious: Yes (Other)
  Sender: FDA-Public Use
  Company Number: CA-PFIZER INC-2021763268

PATIENT
  Age: 66 Year
  Sex: Male
  Weight: 97.6 kg

DRUGS (8)
  1. RUXIENCE [Interacting]
     Active Substance: RITUXIMAB-PVVR
     Indication: Granulomatosis with polyangiitis
     Dosage: 500 MG, EVERY 6 MONTH
     Route: 042
     Dates: start: 20210825
  2. RUXIENCE [Interacting]
     Active Substance: RITUXIMAB-PVVR
     Dosage: 500 MG, SINGLE DOSE
     Route: 042
     Dates: start: 20210825, end: 20210825
  3. RUXIENCE [Interacting]
     Active Substance: RITUXIMAB-PVVR
     Dosage: 500 MG, EVERY 6 MONTH
     Route: 042
     Dates: start: 20220324
  4. RUXIENCE [Interacting]
     Active Substance: RITUXIMAB-PVVR
     Dosage: 500 MG, SINGLE DOSE
     Route: 042
     Dates: start: 20220324, end: 20220324
  5. RUXIENCE [Interacting]
     Active Substance: RITUXIMAB-PVVR
     Dosage: 500 MG, EVERY 6 MONTH
     Route: 042
     Dates: start: 20221007
  6. RUXIENCE [Interacting]
     Active Substance: RITUXIMAB-PVVR
     Dosage: 500 MG, AFTER 6 MONTHS (EVERY 6 MONTH)
     Route: 042
     Dates: start: 20230424
  7. IVIGLOB EX [Interacting]
     Active Substance: HUMAN IMMUNOGLOBULIN G
     Dosage: 1 DF
  8. IRON [Concomitant]
     Active Substance: IRON
     Dosage: UNK

REACTIONS (7)
  - Foot fracture [Recovering/Resolving]
  - Off label use [Unknown]
  - Off label use [Unknown]
  - Off label use [Unknown]
  - Intentional product use issue [Unknown]
  - Weight decreased [Unknown]
  - Drug interaction [Not Recovered/Not Resolved]

NARRATIVE: CASE EVENT DATE: 20220324
